FAERS Safety Report 4501683-8 (Version None)
Quarter: 2004Q4

REPORT INFORMATION
  Report Type: 
  Country: None (occurrence: None)
  Receive Date: 20041109
  Receipt Date: 20041027
  Transmission Date: 20050328
  Serious: Yes (Disabling)
  Sender: FDA-Public Use
  Company Number: 2004CG01837

PATIENT
  Age: 77 Year
  Sex: Female
  Weight: 63 kg

DRUGS (1)
  1. NAROPIN [Suspect]
     Indication: LOCAL ANAESTHESIA
     Dosage: 19 ML ONCE PNEU
     Dates: start: 20040713, end: 20040713

REACTIONS (9)
  - EYE OPERATION COMPLICATION [None]
  - HYPOPYON [None]
  - INFLAMMATION [None]
  - OPTIC DISC DISORDER [None]
  - POST PROCEDURAL COMPLICATION [None]
  - RETINAL ARTERY OCCLUSION [None]
  - RETINAL DISORDER [None]
  - VASOCONSTRICTION [None]
  - VISUAL ACUITY REDUCED [None]
